FAERS Safety Report 15592700 (Version 5)
Quarter: 2019Q2

REPORT INFORMATION
  Report Type: Report from Study
  Country: None (occurrence: NL)
  Receive Date: 20181107
  Receipt Date: 20190509
  Transmission Date: 20190711
  Serious: Yes (Death, Life-Threatening, Hospitalization)
  Sender: FDA-Public Use
  Company Number: NL-ABBVIE-18P-114-2529693-00

PATIENT
  Age: 78 Year
  Sex: Male
  Weight: 128 kg

DRUGS (13)
  1. NOVORAPID [Concomitant]
     Active Substance: INSULIN ASPART
     Indication: TYPE 2 DIABETES MELLITUS
     Dosage: DOSE: 22 IE
     Route: 048
     Dates: start: 201702
  2. FUROSEMIDE. [Concomitant]
     Active Substance: FUROSEMIDE
     Indication: CARDIAC FAILURE CONGESTIVE
     Route: 048
     Dates: start: 20120804, end: 201211
  3. TRESIBA [Concomitant]
     Active Substance: INSULIN DEGLUDEC
     Indication: TYPE 2 DIABETES MELLITUS
     Dosage: DOSE: 38 IE
     Dates: start: 201702
  4. FUROSEMIDE. [Concomitant]
     Active Substance: FUROSEMIDE
     Indication: HYPERTENSION
     Route: 048
     Dates: start: 20120419
  5. METFORMINE [Concomitant]
     Active Substance: METFORMIN HYDROCHLORIDE
     Indication: TYPE 2 DIABETES MELLITUS
     Route: 048
  6. NIFEDIPINE. [Concomitant]
     Active Substance: NIFEDIPINE
     Indication: HYPERTENSION
     Dates: start: 20120115
  7. ELIQUIS [Concomitant]
     Active Substance: APIXABAN
     Indication: ANTICOAGULANT THERAPY
     Route: 048
     Dates: start: 201512
  8. LIPITOR [Concomitant]
     Active Substance: ATORVASTATIN CALCIUM
     Indication: HYPERCHOLESTEROLAEMIA
     Route: 048
     Dates: start: 2005
  9. NITROLINGUAL [Concomitant]
     Active Substance: NITROGLYCERIN
     Indication: PULMONARY HYPERTENSION
     Dates: start: 20111106
  10. FLUTICASONE. [Concomitant]
     Active Substance: FLUTICASONE
     Indication: RHINITIS
     Dates: start: 201301
  11. HUMIRA [Suspect]
     Active Substance: ADALIMUMAB
     Indication: PSORIASIS
     Route: 058
     Dates: start: 200810, end: 20181012
  12. FUROSEMIDE. [Concomitant]
     Active Substance: FUROSEMIDE
     Indication: OEDEMA PERIPHERAL
     Route: 048
     Dates: start: 201211, end: 20130910
  13. FUROSEMIDE. [Concomitant]
     Active Substance: FUROSEMIDE
     Route: 048
     Dates: start: 201512

REACTIONS (2)
  - Oropharyngeal neoplasm [Fatal]
  - Hypoxia [Fatal]

NARRATIVE: CASE EVENT DATE: 20181001
